FAERS Safety Report 20884332 (Version 1)
Quarter: 2022Q2

REPORT INFORMATION
  Report Type: Spontaneous
  Country: US (occurrence: US)
  Receive Date: 20220527
  Receipt Date: 20220527
  Transmission Date: 20220720
  Serious: No
  Sender: FDA-Public Use
  Company Number: US-PFIZER INC-202200754551

PATIENT
  Age: 54 Year
  Sex: Female
  Weight: 68.04 kg

DRUGS (1)
  1. PAXLOVID [Suspect]
     Active Substance: NIRMATRELVIR\RITONAVIR
     Indication: COVID-19 treatment
     Dosage: 3 IN MORNING AND 3 AT NIGHT
     Dates: start: 20220514, end: 202205

REACTIONS (8)
  - Oropharyngeal pain [Unknown]
  - Dysphagia [Unknown]
  - Swelling face [Unknown]
  - Erythema [Unknown]
  - Dysphonia [Unknown]
  - Throat tightness [Unknown]
  - Speech disorder [Unknown]
  - Rash [Recovered/Resolved]

NARRATIVE: CASE EVENT DATE: 20220514
